FAERS Safety Report 20754840 (Version 3)
Quarter: 2022Q2

REPORT INFORMATION
  Report Type: Spontaneous
  Country: US (occurrence: US)
  Receive Date: 20220427
  Receipt Date: 20220512
  Transmission Date: 20220721
  Serious: Yes (Disabling, Other)
  Sender: FDA-Public Use
  Company Number: US-AUROBINDO-AUR-APL-2022-013428

PATIENT
  Age: 74 Year
  Sex: Female
  Weight: 59.87 kg

DRUGS (2)
  1. GABAPENTIN [Suspect]
     Active Substance: GABAPENTIN
     Indication: Neuralgia
     Dosage: 600 MILLIGRAM, TWO TIMES A DAY
     Route: 065
  2. PREMARIN [Suspect]
     Active Substance: ESTROGENS, CONJUGATED
     Indication: Product used for unknown indication
     Dosage: 1.25 MILLIGRAM
     Route: 065

REACTIONS (10)
  - Deafness [Unknown]
  - Cerebrovascular accident [Recovered/Resolved]
  - Hot flush [Not Recovered/Not Resolved]
  - Dehydration [Not Recovered/Not Resolved]
  - Vertigo [Unknown]
  - Hypertension [Unknown]
  - Neck injury [Not Recovered/Not Resolved]
  - Back disorder [Not Recovered/Not Resolved]
  - Product label issue [Unknown]
  - Dizziness [Unknown]

NARRATIVE: CASE EVENT DATE: 20220314
